FAERS Safety Report 25192346 (Version 1)
Quarter: 2025Q2

REPORT INFORMATION
  Report Type: Spontaneous
  Country: US (occurrence: None)
  Receive Date: 20250412
  Receipt Date: 20250412
  Transmission Date: 20250716
  Serious: Yes (Hospitalization)
  Sender: FDA-CTU
  Company Number: None

PATIENT
  Age: 61 Year
  Sex: Male

DRUGS (2)
  1. AMBRISENTAN [Suspect]
     Active Substance: AMBRISENTAN
     Indication: Pulmonary arterial hypertension
     Dosage: FREQUENCY : DAILY;?
     Route: 048
     Dates: start: 20250220
  2. TYVASO DPI [Suspect]
     Active Substance: TREPROSTINIL

REACTIONS (3)
  - Blood pressure decreased [None]
  - Haemoglobin decreased [None]
  - Heart rate decreased [None]

NARRATIVE: CASE EVENT DATE: 20250408
